FAERS Safety Report 5681755-5 (Version None)
Quarter: 2008Q1

REPORT INFORMATION
  Report Type: 
  Country: None (occurrence: None)
  Receive Date: 20080326
  Receipt Date: 20070309
  Transmission Date: 20080703
  Serious: No
  Sender: FDA-Public Use
  Company Number: US-BAYER-US-2007-008458

PATIENT
  Age: 31 Year
  Sex: Female
  Weight: 59 kg

DRUGS (1)
  1. MIRENA [Suspect]
     Indication: CONTRACEPTION
     Route: 015
     Dates: start: 20070101

REACTIONS (5)
  - ABDOMINAL DISTENSION [None]
  - DYSMENORRHOEA [None]
  - FEELING ABNORMAL [None]
  - POOR QUALITY SLEEP [None]
  - VAGINAL HAEMORRHAGE [None]
